FAERS Safety Report 8239405-X (Version None)
Quarter: 2012Q1

REPORT INFORMATION
  Report Type: 
  Country: None (occurrence: None)
  Receive Date: 20120326
  Receipt Date: 20120316
  Transmission Date: 20120608
  Serious: Yes (Death)
  Sender: FDA-Public Use
  Company Number: TPA2012A01402

PATIENT
  Age: 70 Year
  Sex: Male

DRUGS (15)
  1. WARFARIN 9WARFARIN POTASSIUM) [Concomitant]
  2. ALOSENN (ACHILLEA MILLEFOLIUM, SENNA ALEXANDRINA LEAF, SENNA ALEXANDRI [Concomitant]
  3. TAMSLON (TAMSULOSIN HYDROCHLORIDE) [Concomitant]
  4. RABEPRAZOLE SODIUM [Concomitant]
  5. FEBURIC (FEBUXOSTAT) [Suspect]
     Indication: HYPERURICAEMIA
     Dosage: 10 MG (10 MG, 1 IN 2 D), PER ORAL
     Route: 048
     Dates: start: 20110901
  6. GLIMICRON (GLICLAZIDE) [Concomitant]
  7. ZOLPIDEM TARTRATE [Concomitant]
  8. LASIX [Concomitant]
  9. MEXITIL [Concomitant]
  10. ENALAPRIL MALEATE [Concomitant]
  11. LAXOBERON (SODIUM FICOSULFATE) [Concomitant]
  12. LAMIRAPID (METILDIGOXIN) [Concomitant]
  13. CRESTOR [Concomitant]
  14. ASPIRIN [Concomitant]
  15. CARVEDILOL [Concomitant]

REACTIONS (1)
  - LOSS OF CONSCIOUSNESS [None]
